FAERS Safety Report 11859410 (Version 1)
Quarter: 2015Q4

REPORT INFORMATION
  Report Type: Report from Study
  Country: CA (occurrence: CA)
  Receive Date: 20151221
  Receipt Date: 20151221
  Transmission Date: 20160305
  Serious: Yes (Other)
  Sender: FDA-Public Use
  Company Number: CA-AMGEN-CANSL2015135281

PATIENT

DRUGS (1)
  1. ENBREL [Suspect]
     Active Substance: ETANERCEPT
     Indication: ANKYLOSING SPONDYLITIS
     Dosage: 50 MG, UNK
     Route: 065
     Dates: start: 20131016

REACTIONS (6)
  - Systemic lupus erythematosus [Not Recovered/Not Resolved]
  - Nervous system disorder [Not Recovered/Not Resolved]
  - Demyelination [Not Recovered/Not Resolved]
  - Bone marrow toxicity [Not Recovered/Not Resolved]
  - Autoantibody positive [Not Recovered/Not Resolved]
  - Hepatotoxicity [Not Recovered/Not Resolved]
